FAERS Safety Report 10674731 (Version 1)
Quarter: 2014Q4

REPORT INFORMATION
  Report Type: Spontaneous
  Country: US (occurrence: None)
  Receive Date: 20141222
  Receipt Date: 20141222
  Transmission Date: 20150529
  Serious: Yes (Death)
  Sender: FDA-Public Use
  Company Number: INS201412-000316

PATIENT
  Age: 55 Year
  Sex: Female

DRUGS (24)
  1. XANAX [Concomitant]
     Active Substance: ALPRAZOLAM
  2. MORPHINE SULFATE. [Concomitant]
     Active Substance: MORPHINE SULFATE
  3. NITROGLYCERIN. [Concomitant]
     Active Substance: NITROGLYCERIN
  4. ZEBETA [Concomitant]
     Active Substance: BISOPROLOL FUMARATE
  5. DILAUDID [Concomitant]
     Active Substance: HYDROMORPHONE HYDROCHLORIDE
  6. FENTORA (FENTANYL) [Concomitant]
  7. VITAMIN B3 [Concomitant]
     Active Substance: NIACIN
  8. FUROSEMIDE. [Concomitant]
     Active Substance: FUROSEMIDE
  9. XARELTO [Concomitant]
     Active Substance: RIVAROXABAN
  10. PRAVASTATIN [Concomitant]
     Active Substance: PRAVASTATIN\PRAVASTATIN SODIUM
  11. ORENCIA (ABATACEPT) [Concomitant]
  12. POTASSIUM [Concomitant]
     Active Substance: POTASSIUM
  13. PREDNISONE. [Concomitant]
     Active Substance: PREDNISONE
  14. PHENERGAN [Concomitant]
     Active Substance: PROMETHAZINE HYDROCHLORIDE
  15. KADIAN (MORPHINE SULFATE) [Concomitant]
  16. PROTONIX (PANTOPRAZOLE) [Concomitant]
  17. IMODIUM (LOPERAMIDE) [Concomitant]
  18. INSULIN [Concomitant]
     Active Substance: INSULIN NOS
  19. SYNTHROID [Concomitant]
     Active Substance: LEVOTHYROXINE SODIUM
  20. GLUMETZA (METFORMIN HCL) [Concomitant]
  21. SUBSYS [Suspect]
     Active Substance: FENTANYL
     Indication: PAIN
     Dates: start: 20140905
  22. LYRICA [Concomitant]
     Active Substance: PREGABALIN
  23. SINGULAIR (MONTELUKAST SODIUM) [Concomitant]
  24. SPIRONOLACTONE. [Concomitant]
     Active Substance: SPIRONOLACTONE

REACTIONS (2)
  - Off label use [None]
  - Death [None]
